FAERS Safety Report 6098076-1 (Version None)
Quarter: 2009Q1

REPORT INFORMATION
  Report Type: 
  Country: None (occurrence: None)
  Receive Date: 20090227
  Receipt Date: 20090217
  Transmission Date: 20090719
  Serious: Yes (Hospitalization, Other)
  Sender: FDA-Public Use
  Company Number: US-ABBOTT-09P-163-0557696-00

PATIENT
  Sex: Male
  Weight: 82.174 kg

DRUGS (2)
  1. HUMIRA [Suspect]
     Indication: CROHN'S DISEASE
     Dates: start: 20070101, end: 20080201
  2. AZACOL [Concomitant]
     Indication: CROHN'S DISEASE

REACTIONS (25)
  - ABDOMINAL HERNIA [None]
  - DEHYDRATION [None]
  - ENTEROCOCCAL INFECTION [None]
  - ESCHERICHIA INFECTION [None]
  - FUNGAL INFECTION [None]
  - GALLBLADDER DISORDER [None]
  - GANGRENE [None]
  - HYPERGLYCAEMIA [None]
  - INTESTINAL FISTULA [None]
  - INTESTINAL PERFORATION [None]
  - LOCALISED INFECTION [None]
  - MALAISE [None]
  - MEMORY IMPAIRMENT [None]
  - NAUSEA [None]
  - PERFORATION BILE DUCT [None]
  - PERIHEPATIC ABSCESS [None]
  - PNEUMONIA [None]
  - PNEUMONIA ASPIRATION [None]
  - PNEUMONIA BACTERIAL [None]
  - POSTURE ABNORMAL [None]
  - RENAL FAILURE ACUTE [None]
  - SEPSIS [None]
  - SKIN DISCOLOURATION [None]
  - STAPHYLOCOCCAL SEPSIS [None]
  - VOMITING [None]
